FAERS Safety Report 10722249 (Version 1)
Quarter: 2015Q1

REPORT INFORMATION
  Report Type: Spontaneous
  Country: FR (occurrence: FR)
  Receive Date: 20150120
  Receipt Date: 20150120
  Transmission Date: 20150721
  Serious: Yes (Disabling)
  Sender: FDA-Public Use
  Company Number: FR-ROCHE-1522067

PATIENT
  Age: 63 Year
  Sex: Female

DRUGS (15)
  1. EXEMESTANE. [Concomitant]
     Active Substance: EXEMESTANE
  2. MIANSERINE [Concomitant]
     Active Substance: MIANSERIN HYDROCHLORIDE
     Route: 065
  3. PRETERAX [Concomitant]
     Active Substance: INDAPAMIDE\PERINDOPRIL
     Dosage: 0.5/0.625
     Route: 065
  4. PACLITAXEL. [Concomitant]
     Active Substance: PACLITAXEL
     Route: 065
     Dates: start: 20140114, end: 20140709
  5. AVASTIN [Suspect]
     Active Substance: BEVACIZUMAB
     Dosage: 1 ADMINISTRATION EVERY 15 DAYS
     Route: 042
     Dates: start: 20140811, end: 20141017
  6. LANTUS [Concomitant]
     Active Substance: INSULIN GLARGINE
     Route: 065
  7. SOLUPRED (FRANCE) [Concomitant]
     Active Substance: PREDNISOLONE
     Route: 065
  8. FRAGMINE [Concomitant]
     Active Substance: DALTEPARIN SODIUM
     Dosage: 5000 IU/0.2 ML
     Route: 065
  9. LANTUS [Concomitant]
     Active Substance: INSULIN GLARGINE
     Dosage: 100 IU/ML
     Route: 065
  10. AVASTIN [Suspect]
     Active Substance: BEVACIZUMAB
     Indication: BREAST CANCER
     Dosage: 1 ADMINISTRATION EVERY 15 DAYS
     Route: 042
     Dates: start: 20140114, end: 20140709
  11. VELMETIA [Concomitant]
     Active Substance: METFORMIN\SITAGLIPTIN
     Dosage: 50 MG/1G
     Route: 065
  12. HUMALOG MIX [Concomitant]
     Active Substance: INSULIN LISPRO
     Dosage: 25 IU/ML
     Route: 065
  13. HUMALOG MIX [Concomitant]
     Active Substance: INSULIN LISPRO
     Route: 065
  14. NOVORAPID [Concomitant]
     Active Substance: INSULIN ASPART
     Dosage: 100 IU/ML
     Route: 065
  15. INEXIUM [Concomitant]
     Active Substance: ESOMEPRAZOLE
     Route: 065

REACTIONS (1)
  - Skin necrosis [Recovered/Resolved with Sequelae]

NARRATIVE: CASE EVENT DATE: 20141114
